FAERS Safety Report 7799946-6 (Version None)
Quarter: 2011Q4

REPORT INFORMATION
  Report Type: 
  Country: None (occurrence: None)
  Receive Date: 20111006
  Receipt Date: 20110922
  Transmission Date: 20120403
  Serious: Yes (Other)
  Sender: FDA-Public Use
  Company Number: US-JNJFOC-20110911662

PATIENT
  Sex: Female
  Weight: 69.09 kg

DRUGS (9)
  1. TYLENOL-500 [Suspect]
     Indication: PRODUCT USED FOR UNKNOWN INDICATION
     Dosage: UP TO SIX DOSES IN A DAY
     Route: 065
  2. TYLENOL-500 [Suspect]
     Route: 065
  3. DIGOXIN [Concomitant]
     Route: 065
     Dates: start: 20050101
  4. CELEBREX [Concomitant]
     Route: 065
     Dates: start: 20050101
  5. COREG [Concomitant]
     Route: 065
     Dates: start: 20050101
  6. COUMADIN [Concomitant]
     Route: 065
     Dates: start: 20050101
  7. TRAMADOL HCL [Concomitant]
  8. MULTAQ [Suspect]
     Indication: ATRIAL FIBRILLATION
     Route: 065
     Dates: start: 20110627, end: 20110704
  9. LASIX [Concomitant]
     Route: 065
     Dates: start: 20050101

REACTIONS (2)
  - CHOLECYSTITIS [None]
  - HEPATITIS [None]
